FAERS Safety Report 21975512 (Version 1)
Quarter: 2023Q1

REPORT INFORMATION
  Report Type: Spontaneous
  Country: US (occurrence: US)
  Receive Date: 20230210
  Receipt Date: 20230210
  Transmission Date: 20230418
  Serious: Yes (Other)
  Sender: FDA-Public Use
  Company Number: US-JNJFOC-20230207302

PATIENT
  Age: 19 Year
  Sex: Female

DRUGS (4)
  1. ZYRTEC [Suspect]
     Active Substance: CETIRIZINE HYDROCHLORIDE
     Indication: Product used for unknown indication
     Route: 065
  2. BENADRYL [Suspect]
     Active Substance: DIPHENHYDRAMINE HYDROCHLORIDE
     Indication: Product used for unknown indication
     Route: 065
  3. DUPILUMAB [Suspect]
     Active Substance: DUPILUMAB
     Indication: Dermatitis atopic
     Dosage: 600MG ONCE FOLLOWED BY 300MG EVERY OTHER WEEK SINCE 2022 SUBCUTANEOUSLY
     Route: 058
     Dates: start: 20220324
  4. DUPILUMAB [Suspect]
     Active Substance: DUPILUMAB
     Indication: Eczema
     Dosage: 600MG ONCE FOLLOWED BY 300MG EVERY OTHER WEEK SINCE 2022 SUBCUTANEOUSLY
     Route: 058
     Dates: start: 20220324

REACTIONS (6)
  - Blindness transient [Unknown]
  - Amblyopia [Unknown]
  - Dermatitis atopic [Recovering/Resolving]
  - Eye swelling [Unknown]
  - Vision blurred [Unknown]
  - Drug hypersensitivity [Unknown]
